FAERS Safety Report 8265801-0 (Version None)
Quarter: 2012Q2

REPORT INFORMATION
  Report Type: 
  Country: None (occurrence: None)
  Receive Date: 20120406
  Receipt Date: 20120404
  Transmission Date: 20120825
  Serious: Yes (Other)
  Sender: FDA-Public Use
  Company Number: PHEH2007US14412

PATIENT
  Sex: Female
  Weight: 67.12 kg

DRUGS (29)
  1. ZOMETA [Suspect]
     Dates: start: 20040101, end: 20050101
  2. TAXOTERE [Concomitant]
  3. GEMZAR [Concomitant]
  4. TYKERB [Concomitant]
  5. PEPCID [Concomitant]
  6. AREDIA [Suspect]
     Indication: BREAST CANCER
     Dates: start: 19990101, end: 20040101
  7. PERCOCET [Concomitant]
  8. PROZAC [Concomitant]
     Dosage: 20 MG, QD
  9. MEDROL [Concomitant]
  10. EPOGEN [Concomitant]
  11. PAXIL [Concomitant]
  12. LORTAB [Concomitant]
  13. MIRALAX [Concomitant]
  14. LASIX [Concomitant]
  15. ZOFRAN [Concomitant]
  16. FLEXERIL [Concomitant]
  17. EFFEXOR [Concomitant]
  18. NOLVADEX [Concomitant]
  19. OXYCONTIN [Concomitant]
  20. COUMADIN [Concomitant]
     Dosage: 1 MG, QD
  21. FEMARA [Concomitant]
     Indication: BREAST CANCER
  22. XELODA [Concomitant]
  23. TYLENOL [Concomitant]
  24. ATIVAN [Concomitant]
  25. ALPRAZOLAM [Concomitant]
  26. TAXOL [Concomitant]
  27. NAVELBINE [Concomitant]
  28. TAMOXIFEN CITRATE [Concomitant]
  29. DECADRON [Concomitant]

REACTIONS (77)
  - METASTASES TO LYMPH NODES [None]
  - DENTAL CARIES [None]
  - TOOTH FRACTURE [None]
  - THROMBOCYTOPENIA [None]
  - SKIN LESION [None]
  - POLLAKIURIA [None]
  - FATIGUE [None]
  - HEADACHE [None]
  - CONFUSIONAL STATE [None]
  - METASTASES TO BONE [None]
  - OSTEONECROSIS OF JAW [None]
  - PERIODONTAL DISEASE [None]
  - ANHEDONIA [None]
  - TOOTH DISORDER [None]
  - SPINAL COMPRESSION FRACTURE [None]
  - TENDON DISORDER [None]
  - VULVOVAGINAL DRYNESS [None]
  - ALOPECIA [None]
  - HAEMATURIA [None]
  - VISUAL ACUITY REDUCED [None]
  - DYSPEPSIA [None]
  - INTERVERTEBRAL DISC PROTRUSION [None]
  - HEPATIC NEOPLASM [None]
  - PAIN [None]
  - TOOTH LOSS [None]
  - SPINAL OSTEOARTHRITIS [None]
  - ABDOMINAL PAIN [None]
  - DRY SKIN [None]
  - DIARRHOEA [None]
  - GINGIVAL INFECTION [None]
  - GINGIVAL DISORDER [None]
  - RECTAL HAEMORRHAGE [None]
  - TRAUMATIC INTRACRANIAL HAEMORRHAGE [None]
  - FEMUR FRACTURE [None]
  - OEDEMA PERIPHERAL [None]
  - WEIGHT DECREASED [None]
  - ASTHENIA [None]
  - DRY EYE [None]
  - ARTHRALGIA [None]
  - METASTASES TO LUNG [None]
  - METASTASES TO LIVER [None]
  - HEPATIC CYST [None]
  - TOOTH EROSION [None]
  - PATHOLOGICAL FRACTURE [None]
  - CYST [None]
  - CEREBRAL ATROPHY [None]
  - HOT FLUSH [None]
  - DYSGEUSIA [None]
  - PANCYTOPENIA [None]
  - HYPERTENSION [None]
  - HEPATIC LESION [None]
  - INJURY [None]
  - ATELECTASIS [None]
  - VOMITING [None]
  - CEREBRAL HAEMATOMA [None]
  - BONE PAIN [None]
  - ANAEMIA [None]
  - OVARIAN MASS [None]
  - PRURITUS [None]
  - AMNESIA [None]
  - METASTASES TO OVARY [None]
  - TOOTHACHE [None]
  - ANXIETY [None]
  - DIZZINESS [None]
  - TENOSYNOVITIS [None]
  - MYALGIA [None]
  - BURSITIS [None]
  - RENAL CYST [None]
  - PARAESTHESIA [None]
  - NAIL DISORDER [None]
  - OSTEOMYELITIS [None]
  - STOMATITIS [None]
  - DYSPNOEA [None]
  - FALL [None]
  - PLEURAL EFFUSION [None]
  - SINUS DISORDER [None]
  - HYPOAESTHESIA [None]
